FAERS Safety Report 6681020-3 (Version None)
Quarter: 2010Q2

REPORT INFORMATION
  Report Type: 
  Country: None (occurrence: None)
  Receive Date: 20100414
  Receipt Date: 20100408
  Transmission Date: 20101027
  Serious: Yes (Other)
  Sender: FDA-Public Use
  Company Number: JP-ASTRAZENECA-2010SE13183

PATIENT
  Age: 71 Year
  Sex: Female

DRUGS (4)
  1. IRESSA [Suspect]
     Indication: LUNG ADENOCARCINOMA
     Route: 048
     Dates: start: 20020919, end: 20021107
  2. IRESSA [Suspect]
     Route: 048
     Dates: start: 20030117, end: 20030227
  3. IRESSA [Suspect]
     Dosage: 250 MG DAILY, ADMINISTERED FOR FOUR WEEKS AND SUSPENDED FOR THREE WEEKS
     Route: 048
     Dates: start: 20030301, end: 20041001
  4. IRESSA [Suspect]
     Route: 048
     Dates: start: 20041001

REACTIONS (1)
  - HEPATIC FUNCTION ABNORMAL [None]
